FAERS Safety Report 10032881 (Version 7)
Quarter: 2015Q4

REPORT INFORMATION
  Report Type: Report from Study
  Country: US (occurrence: US)
  Receive Date: 20140324
  Receipt Date: 20151118
  Transmission Date: 20160304
  Serious: Yes (Hospitalization)
  Sender: FDA-Public Use
  Company Number: US-SA-2014SA017027

PATIENT
  Age: 52 Year
  Sex: Female

DRUGS (1)
  1. AUBAGIO [Suspect]
     Active Substance: TERIFLUNOMIDE
     Indication: MULTIPLE SCLEROSIS
     Route: 048
     Dates: start: 20130507, end: 20140322

REACTIONS (10)
  - Muscle spasms [Unknown]
  - Depression [Unknown]
  - Burning sensation [Unknown]
  - Unevaluable event [Unknown]
  - Speech disorder [Unknown]
  - Dysgraphia [Unknown]
  - Gait disturbance [Unknown]
  - Neuritis [Unknown]
  - Central nervous system lesion [Unknown]
  - Multiple sclerosis relapse [Unknown]
